FAERS Safety Report 5731418-2 (Version None)
Quarter: 2008Q2

REPORT INFORMATION
  Report Type: 
  Country: None (occurrence: None)
  Receive Date: 20080508
  Receipt Date: 20080428
  Transmission Date: 20081010
  Serious: Yes (Hospitalization)
  Sender: FDA-Public Use
  Company Number: PHBS2008SE03147

PATIENT

DRUGS (1)
  1. GLEEVEC [Suspect]

REACTIONS (3)
  - CROHN'S DISEASE [None]
  - INTESTINAL OPERATION [None]
  - INTESTINAL PERFORATION [None]
